FAERS Safety Report 16156066 (Version 2)
Quarter: 2019Q2

REPORT INFORMATION
  Report Type: Spontaneous
  Country: GB (occurrence: GB)
  Receive Date: 20190404
  Receipt Date: 20190513
  Transmission Date: 20190711
  Serious: Yes (Other)
  Sender: FDA-Public Use
  Company Number: GB-ABBVIE-19K-167-2728789-00

PATIENT
  Age: 63 Year
  Sex: Male
  Weight: 84 kg

DRUGS (3)
  1. HUMIRA [Suspect]
     Active Substance: ADALIMUMAB
     Indication: CROHN^S DISEASE
     Route: 058
     Dates: start: 2011, end: 201903
  2. HYCOSAN [Concomitant]
     Indication: PRODUCT USED FOR UNKNOWN INDICATION
     Dosage: NIGHT OINTMENT VITAMIN A
     Dates: start: 20190218, end: 20190327
  3. 5-HYDROXYTRYPTOPHAN [Concomitant]
     Active Substance: OXITRIPTAN
     Indication: PRODUCT USED FOR UNKNOWN INDICATION
     Dates: start: 20190101, end: 20190327

REACTIONS (9)
  - Cataract [Unknown]
  - Inflammatory bowel disease [Unknown]
  - Corneal disorder [Unknown]
  - Visual acuity reduced [Unknown]
  - Corneal thickening [Unknown]
  - Acquired corneal dystrophy [Not Recovered/Not Resolved]
  - Keratitis [Recovered/Resolved]
  - Intraocular pressure increased [Unknown]
  - Corneal oedema [Unknown]

NARRATIVE: CASE EVENT DATE: 20180109
